FAERS Safety Report 5587945-4 (Version None)
Quarter: 2008Q1

REPORT INFORMATION
  Report Type: 
  Country: None (occurrence: None)
  Receive Date: 20080111
  Receipt Date: 20080104
  Transmission Date: 20080703
  Serious: Yes (Death)
  Sender: FDA-Public Use
  Company Number: US-JNJFOC-20071205979

PATIENT
  Sex: Female
  Weight: 72.58 kg

DRUGS (7)
  1. DURAGESIC-100 [Suspect]
     Indication: PAIN
     Route: 062
  2. ZOLOFT [Concomitant]
     Indication: DEPRESSION
     Route: 048
  3. SEROQUEL [Concomitant]
     Indication: ANXIETY
     Route: 048
  4. MIDRIN [Concomitant]
     Indication: MIGRAINE
     Route: 048
  5. SYNTHROID [Concomitant]
     Route: 048
  6. NEXIUM [Concomitant]
     Route: 048
  7. MAXALT [Concomitant]
     Indication: MIGRAINE
     Route: 048

REACTIONS (1)
  - NEOPLASM MALIGNANT [None]
